FAERS Safety Report 18787757 (Version 1)
Quarter: 2021Q1

REPORT INFORMATION
  Report Type: Spontaneous
  Country: US (occurrence: US)
  Receive Date: 20210125
  Receipt Date: 20210125
  Transmission Date: 20210419
  Serious: No
  Sender: FDA-Public Use
  Company Number: US-ROCHE-2645422

PATIENT
  Age: 72 Year
  Sex: Female

DRUGS (1)
  1. RITUXAN [Suspect]
     Active Substance: RITUXIMAB
     Indication: NEUROMYELITIS OPTICA SPECTRUM DISORDER
     Route: 065

REACTIONS (9)
  - Oral discomfort [Unknown]
  - Pain [Unknown]
  - Stomatitis [Unknown]
  - Anaemia [Unknown]
  - Glaucoma [Unknown]
  - Off label use [Unknown]
  - Adverse drug reaction [Unknown]
  - Cachexia [Unknown]
  - Intentional product use issue [Unknown]
